FAERS Safety Report 8301061 (Version 3)
Quarter: 2012Q4

REPORT INFORMATION
  Report Type: 
  Country: US (occurrence: US)
  Receive Date: 20111219
  Receipt Date: 20121220
  Transmission Date: 20130627
  Serious: No
  Sender: FDA-Public Use
  Company Number: US-ASTRAZENECA-2008UW28808

PATIENT
  Age: 79 Year
  Sex: Female
  Weight: 65.3 kg

DRUGS (5)
  1. CRESTOR [Suspect]
     Indication: BLOOD CHOLESTEROL INCREASED
     Route: 048
     Dates: start: 20081214
  2. ATENOLOL [Concomitant]
  3. SYNTHROID [Concomitant]
  4. LISINOPRIL [Concomitant]
  5. POTASSIUM CHLORIDE [Concomitant]

REACTIONS (4)
  - Back pain [Not Recovered/Not Resolved]
  - Aphonia [Unknown]
  - Arthritis [Unknown]
  - Pain in extremity [Not Recovered/Not Resolved]
